FAERS Safety Report 8433626-9 (Version None)
Quarter: 2012Q2

REPORT INFORMATION
  Report Type: 
  Country: None (occurrence: None)
  Receive Date: 20120323
  Receipt Date: 20110809
  Transmission Date: 20120825
  Serious: Yes (Hospitalization, Other)
  Sender: FDA-Public Use
  Company Number: 163-21880-11071518

PATIENT
  Age: 55 Year
  Sex: Male
  Weight: 97.0698 kg

DRUGS (1)
  1. LENALIDOMIDE [Suspect]
     Indication: MULTIPLE MYELOMA
     Dosage: 10 MG, DAILY, PO
     Route: 048
     Dates: start: 20101201, end: 20110601

REACTIONS (3)
  - COLITIS ISCHAEMIC [None]
  - CARDIO-RESPIRATORY ARREST [None]
  - PULMONARY EMBOLISM [None]
